FAERS Safety Report 9771915 (Version 1)
Quarter: 2013Q4

REPORT INFORMATION
  Report Type: Spontaneous
  Country: GB (occurrence: None)
  Receive Date: 20131001
  Receipt Date: 20131001
  Transmission Date: 20140711
  Serious: Yes (Other)
  Sender: FDA-Public Use
  Company Number: GER/UKI/13/0027403

PATIENT
  Age: 20 Year
  Sex: Female
  Weight: 56 kg

DRUGS (3)
  1. FLUOXETINE (FLUOXETINE) [Suspect]
     Indication: BULIMIA NERVOSA
     Route: 048
     Dates: start: 20120701, end: 20121006
  2. FLUOXETINE (FLUOXETINE) [Suspect]
     Indication: DEPRESSION
     Route: 048
     Dates: start: 20120701, end: 20121006
  3. CO-CYPRINDIOL (DIANE) [Concomitant]

REACTIONS (5)
  - Diarrhoea [None]
  - Headache [None]
  - Nausea [None]
  - Fatigue [None]
  - Disorientation [None]
